FAERS Safety Report 12384269 (Version 4)
Quarter: 2016Q3

REPORT INFORMATION
  Report Type: Spontaneous
  Country: JP (occurrence: JP)
  Receive Date: 20160519
  Receipt Date: 20160812
  Transmission Date: 20161109
  Serious: Yes (Hospitalization)
  Sender: FDA-Public Use
  Company Number: JP-AMGEN-JPNSP2016051508

PATIENT
  Age: 53 Year
  Sex: Male
  Weight: 69 kg

DRUGS (22)
  1. MIRCERA [Suspect]
     Active Substance: METHOXY POLYETHYLENE GLYCOL-EPOETIN BETA
     Indication: NEPHROGENIC ANAEMIA
     Dosage: 250 MUG, QMO
     Route: 042
     Dates: start: 20160509
  2. BAYASPIRIN [Concomitant]
     Active Substance: ASPIRIN
     Indication: CEREBRAL INFARCTION
     Dosage: 100 MG, QD
     Route: 048
  3. NESP [Suspect]
     Active Substance: DARBEPOETIN ALFA
     Indication: NEPHROGENIC ANAEMIA
     Dosage: 60 MUG, QWK
     Route: 042
     Dates: end: 20160325
  4. REGPARA [Concomitant]
     Active Substance: CINACALCET HYDROCHLORIDE
     Indication: HYPERPARATHYROIDISM SECONDARY
     Dosage: 25 MG, QD
     Route: 048
  5. PROGRAF [Concomitant]
     Active Substance: TACROLIMUS\TACROLIMUS ANHYDROUS
     Indication: MYASTHENIA GRAVIS
     Dosage: 1 MG, QD
     Route: 048
  6. LANSOPRAZOLE. [Concomitant]
     Active Substance: LANSOPRAZOLE
     Indication: GASTRIC ULCER
     Dosage: 15 MG, QD
     Route: 048
  7. CILOSTAZOL. [Concomitant]
     Active Substance: CILOSTAZOL
     Indication: CEREBRAL INFARCTION
     Dosage: 50 MG, BID
     Route: 048
  8. ARTIST [Concomitant]
     Active Substance: CARVEDILOL
     Indication: CARDIAC FAILURE CHRONIC
     Dosage: 2.5 MG, QD
     Route: 048
  9. NESP [Suspect]
     Active Substance: DARBEPOETIN ALFA
     Dosage: 180 MUG, QWK
     Route: 042
     Dates: start: 20160404, end: 20160408
  10. EPOETIN KAPPA [Suspect]
     Active Substance: ERYTHROPOIETIN
     Indication: NEPHROGENIC ANAEMIA
     Dosage: 3000 IU, 3X/WEEK
     Route: 042
     Dates: start: 20160408, end: 20160506
  11. FOLIAMIN [Concomitant]
     Active Substance: FOLIC ACID
     Indication: MYASTHENIA GRAVIS
     Dosage: 5 MG, TID
     Route: 048
  12. DOPS [Concomitant]
     Active Substance: DROXIDOPA
     Indication: PROCEDURAL HYPOTENSION
     Dosage: 100 MG, 3 TIMES/WK
     Route: 048
  13. NESP [Suspect]
     Active Substance: DARBEPOETIN ALFA
     Dosage: 120 MUG, QWK
     Route: 042
     Dates: start: 20160325, end: 20160404
  14. AMBROXOL HYDROCHLORIDE [Concomitant]
     Active Substance: AMBROXOL HYDROCHLORIDE
     Indication: BRONCHITIS
     Dosage: 15 MG, BID
     Route: 048
  15. DOMPERIDONE [Concomitant]
     Active Substance: DOMPERIDONE
     Indication: CHRONIC GASTRITIS
     Dosage: 10 MG, BID
     Route: 048
  16. MYTELASE [Concomitant]
     Active Substance: AMBENONIUM CHLORIDE
     Indication: MYASTHENIA GRAVIS
     Dosage: 5 MG, BID
     Route: 048
  17. NESINA [Concomitant]
     Active Substance: ALOGLIPTIN BENZOATE
     Indication: DIABETES MELLITUS
     Dosage: 6.25 MG, QD
     Route: 048
  18. ETIZOLAM [Concomitant]
     Active Substance: ETIZOLAM
     Indication: INSOMNIA
     Dosage: 0.5 MG, QD
     Route: 048
  19. SCOPOLIA EXTRACT [Concomitant]
     Indication: MYASTHENIA GRAVIS
     Dosage: 0.2 G, BID
     Route: 048
  20. TALION [Concomitant]
     Active Substance: BEPOTASTINE
     Indication: RHINITIS ALLERGIC
     Dosage: 10 MG, QD
     Route: 048
  21. PREDONINE [Concomitant]
     Active Substance: PREDNISOLONE\PREDNISOLONE ACETATE\PREDNISOLONE SODIUM SUCCINATE
     Indication: MYASTHENIA GRAVIS
     Dosage: 5 MG, QD
     Route: 048
  22. BROTIZOLAM [Concomitant]
     Active Substance: BROTIZOLAM
     Indication: INSOMNIA
     Dosage: 0.25 MG, QD
     Route: 048

REACTIONS (5)
  - Diabetic gangrene [None]
  - Drug ineffective [None]
  - Aplasia pure red cell [None]
  - Nephrogenic anaemia [None]
  - Anaemia [Recovering/Resolving]
